FAERS Safety Report 8882339 (Version 1)
Quarter: 2012Q4

REPORT INFORMATION
  Report Type: 
  Country: AR (occurrence: AR)
  Receive Date: 20121102
  Receipt Date: 20121102
  Transmission Date: 20130627
  Serious: Yes (Death)
  Sender: FDA-Public Use
  Company Number: PHHY2012AR099888

PATIENT
  Age: 76 Year
  Sex: Female

DRUGS (1)
  1. EXFORGE D [Suspect]
     Dosage: 1 DF, daily
     Route: 048

REACTIONS (1)
  - Terminal state [Fatal]
